FAERS Safety Report 12798565 (Version 1)
Quarter: 2016Q3

REPORT INFORMATION
  Report Type: Spontaneous
  Country: ES (occurrence: ES)
  Receive Date: 20160930
  Receipt Date: 20160930
  Transmission Date: 20161109
  Serious: Yes (Other)
  Sender: FDA-Public Use
  Company Number: ES-RANBAXY-2014R1-85062

PATIENT
  Age: 32 Year
  Sex: Female

DRUGS (2)
  1. HYDROCORTISONE. [Suspect]
     Active Substance: HYDROCORTISONE
     Indication: HORMONE REPLACEMENT THERAPY
     Dosage: 20 MG IN THE MORNING AND 10 MG IN THE EVENING
     Route: 065
  2. HYDROCORTISONE. [Suspect]
     Active Substance: HYDROCORTISONE
     Dosage: 10 MG IN THE MORNING AND 5 MG IN THE EVENING
     Route: 065

REACTIONS (1)
  - Osteonecrosis [Unknown]
